FAERS Safety Report 6348018-6 (Version None)
Quarter: 2009Q3

REPORT INFORMATION
  Report Type: 
  Country: None (occurrence: None)
  Receive Date: 20090908
  Receipt Date: 20090827
  Transmission Date: 20100115
  Serious: Yes (Other)
  Sender: FDA-Public Use
  Company Number: CHPA2009US17971

PATIENT
  Age: 32 Year
  Sex: Male
  Weight: 65.8 kg

DRUGS (4)
  1. EX-LAX REG STR CHOCOLATED LAX PCS SEN (NCH)(SENNA GLYCOSIDES (CA SALTS [Suspect]
     Indication: LAXATIVE SUPPORTIVE CARE
     Dosage: ORAL, INTRANASAL, INTRAVENOUS
  2. EX-LAX UNKNOWN SENNA (NCH)(SENNA GLYCOSIDES (CA SALTS OF PURIFIED SENN [Suspect]
     Dosage: ORAL, INTRANASAL, INTRAVENOUS
  3. MARIJUANA (CANNABIS, CANNABIS SATIVA) [Concomitant]
  4. DRUG THERAPY NOS (DRUG THERAPY NOS) [Concomitant]

REACTIONS (3)
  - DRUG ABUSE [None]
  - DRUG INEFFECTIVE [None]
  - WRONG TECHNIQUE IN DRUG USAGE PROCESS [None]
